FAERS Safety Report 23562845 (Version 1)
Quarter: 2024Q1

REPORT INFORMATION
  Report Type: Spontaneous
  Country: US (occurrence: US)
  Receive Date: 20240226
  Receipt Date: 20240226
  Transmission Date: 20240410
  Serious: No
  Sender: FDA-Public Use
  Company Number: US-SANOFI-01945693

PATIENT
  Age: 97 Year
  Sex: Male

DRUGS (2)
  1. PLAVIX [Suspect]
     Active Substance: CLOPIDOGREL BISULFATE
     Indication: Arterial thrombosis
     Dosage: 75 MG, QD
     Dates: start: 2007
  2. NEXIUM I.V. [Concomitant]
     Active Substance: ESOMEPRAZOLE SODIUM
     Dosage: 40 MG, BID

REACTIONS (5)
  - Gastrooesophageal reflux disease [Unknown]
  - Dysphonia [Unknown]
  - Muscle spasms [Unknown]
  - Contusion [Unknown]
  - Drug interaction [Unknown]
